FAERS Safety Report 16688420 (Version 2)
Quarter: 2019Q3

REPORT INFORMATION
  Report Type: Report from Study
  Country: US (occurrence: US)
  Receive Date: 20190809
  Receipt Date: 20190823
  Transmission Date: 20191004
  Serious: No
  Sender: FDA-Public Use
  Company Number: US-SHIRE-US201925081

PATIENT
  Sex: Male

DRUGS (1)
  1. GATTEX [Suspect]
     Active Substance: TEDUGLUTIDE\WATER
     Indication: SHORT-BOWEL SYNDROME
     Dosage: 0.0350 UNIT UNKNOWN, 1X/DAY:QD
     Route: 058
     Dates: start: 20151104

REACTIONS (2)
  - Blood count abnormal [Unknown]
  - Muscle strain [Unknown]
